FAERS Safety Report 22216435 (Version 1)
Quarter: 2023Q2

REPORT INFORMATION
  Report Type: Spontaneous
  Country: CN (occurrence: CN)
  Receive Date: 20230417
  Receipt Date: 20230417
  Transmission Date: 20230722
  Serious: Yes (Hospitalization, Other)
  Sender: FDA-Public Use
  Company Number: CN-MACLEODS PHARMACEUTICALS US LTD-MAC2023040526

PATIENT

DRUGS (9)
  1. OLANZAPINE [Interacting]
     Active Substance: OLANZAPINE
     Indication: Psychotic symptom
     Dosage: 10 MILLIGRAM, QD
     Route: 065
  2. OLANZAPINE [Interacting]
     Active Substance: OLANZAPINE
     Dosage: 20 MILLIGRAM, QD
     Route: 065
  3. FLUVOXAMINE [Interacting]
     Active Substance: FLUVOXAMINE
     Indication: Obsessive-compulsive disorder
     Dosage: 50 MILLIGRAM 50 MG/QD (TWICE DAILY)
     Route: 065
     Dates: start: 2022
  4. FLUVOXAMINE [Interacting]
     Active Substance: FLUVOXAMINE
     Indication: Anxiety disorder
     Dosage: 20 MILLIGRAM, QD
     Route: 065
  5. FLUVOXAMINE [Interacting]
     Active Substance: FLUVOXAMINE
     Dosage: 30 MILLIGRAM, QD
     Route: 065
  6. FLUVOXAMINE [Interacting]
     Active Substance: FLUVOXAMINE
     Dosage: 200 MILLIGRAM, QD
     Route: 065
     Dates: start: 2022
  7. FLUVOXAMINE [Interacting]
     Active Substance: FLUVOXAMINE
     Dosage: 100 MILLIGRAM; 100 MG/D (TWICE DAILY)
     Route: 065
     Dates: start: 2022
  8. BUSPIRONE [Interacting]
     Active Substance: BUSPIRONE HYDROCHLORIDE
     Indication: Obsessive-compulsive disorder
     Dosage: 15 MILLIGRAM, QD (THRICE DAILY)
     Route: 065
  9. BUSPIRONE [Interacting]
     Active Substance: BUSPIRONE HYDROCHLORIDE
     Indication: Anxiety disorder
     Dosage: 30 MILLIGRAM, QD
     Route: 065

REACTIONS (6)
  - Drug level above therapeutic [Recovering/Resolving]
  - Drug interaction [Not Recovered/Not Resolved]
  - Constipation [Recovering/Resolving]
  - Blood prolactin increased [Recovering/Resolving]
  - Vomiting [Recovered/Resolved]
  - Nausea [Recovered/Resolved]
